FAERS Safety Report 9477037 (Version 1)
Quarter: 2013Q3

REPORT INFORMATION
  Report Type: Report from Study
  Country: IT (occurrence: IT)
  Receive Date: 20130826
  Receipt Date: 20130826
  Transmission Date: 20140515
  Serious: Yes (Other)
  Sender: FDA-Public Use
  Company Number: IT-INCYTE CORPORATION-2013IN001879

PATIENT
  Age: 49 Year
  Sex: Female

DRUGS (4)
  1. INC424 [Suspect]
     Indication: MYELOFIBROSIS
     Dosage: 20 MG, BID
  2. INC424 [Suspect]
     Dosage: 15 MG, BID
  3. INC424 [Suspect]
     Dosage: 20 MG, BID
     Dates: start: 201301
  4. INC424 [Suspect]
     Dosage: 15 MG, BID

REACTIONS (1)
  - Hepatitis B [Recovered/Resolved]
